FAERS Safety Report 10102540 (Version 1)
Quarter: 2014Q2

REPORT INFORMATION
  Report Type: Spontaneous
  Country: SE (occurrence: SE)
  Receive Date: 20140424
  Receipt Date: 20140424
  Transmission Date: 20141212
  Serious: Yes (Other)
  Sender: FDA-Public Use
  Company Number: SE-ASTRAZENECA-2014SE26390

PATIENT
  Age: 62 Year
  Sex: Female

DRUGS (1)
  1. ROPIVACAINE [Suspect]
     Indication: PROCEDURAL PAIN
     Dosage: 20 ML 7.5 MG/ML
     Route: 065

REACTIONS (3)
  - Muscle contractions involuntary [Recovered/Resolved]
  - Nystagmus [Recovered/Resolved]
  - Hyporesponsive to stimuli [Recovered/Resolved]
